FAERS Safety Report 5983483-5 (Version None)
Quarter: 2008Q4

REPORT INFORMATION
  Report Type: 
  Country: None (occurrence: None)
  Receive Date: 20081208
  Receipt Date: 20080306
  Transmission Date: 20090506
  Serious: No
  Sender: FDA-Public Use
  Company Number: US-AMGEN-KDL266773

PATIENT
  Sex: Female

DRUGS (2)
  1. ENBREL [Suspect]
     Indication: PSORIATIC ARTHROPATHY
     Route: 058
     Dates: start: 20070220, end: 20080206
  2. ENBREL [Suspect]
     Indication: PSORIASIS

REACTIONS (15)
  - ASTHENIA [None]
  - BRADYPHRENIA [None]
  - CARPAL TUNNEL SYNDROME [None]
  - DYSPNOEA [None]
  - FATIGUE [None]
  - FEELING ABNORMAL [None]
  - FIBROMYALGIA [None]
  - HYPERTENSION [None]
  - INJECTION SITE PAIN [None]
  - NAUSEA [None]
  - PAIN [None]
  - SINUSITIS [None]
  - SKIN NODULE [None]
  - TENDERNESS [None]
  - WHEEZING [None]
